FAERS Safety Report 6547718-2 (Version None)
Quarter: 2010Q1

REPORT INFORMATION
  Report Type: 
  Country: None (occurrence: None)
  Receive Date: 20100123
  Receipt Date: 20100114
  Transmission Date: 20100710
  Serious: Yes (Disabling, Other)
  Sender: FDA-Public Use
  Company Number: ZA-JNJFOC-20100105180

PATIENT
  Sex: Female

DRUGS (1)
  1. DURAGESIC-100 [Suspect]
     Indication: PAIN
     Route: 062

REACTIONS (5)
  - DEAFNESS [None]
  - FEAR OF FALLING [None]
  - FEELING ABNORMAL [None]
  - NAUSEA [None]
  - VOMITING [None]
